FAERS Safety Report 8582363 (Version 4)
Quarter: 2013Q4

REPORT INFORMATION
  Report Type: Spontaneous
  Country: US (occurrence: US)
  Receive Date: 20120528
  Receipt Date: 20131023
  Transmission Date: 20140711
  Serious: Yes (Other)
  Sender: FDA-Public Use
  Company Number: US-ROCHE-1069666

PATIENT
  Sex: Male
  Weight: 52.66 kg

DRUGS (3)
  1. ACCUTANE [Suspect]
     Indication: ACNE
     Route: 065
     Dates: start: 200301
  2. ACCUTANE [Suspect]
     Dosage: 40MG IN AM AND 20 MG IN PM
     Route: 065
     Dates: start: 20030527, end: 200306
  3. CLEOCIN T [Concomitant]

REACTIONS (7)
  - Colitis ulcerative [Unknown]
  - Crohn^s disease [Unknown]
  - Inflammatory bowel disease [Unknown]
  - Depression [Unknown]
  - Injury [Unknown]
  - Irritable bowel syndrome [Unknown]
  - Perirectal abscess [Unknown]
